FAERS Safety Report 4575663-0 (Version None)
Quarter: 2005Q1

REPORT INFORMATION
  Report Type: 
  Country: None (occurrence: None)
  Receive Date: 20050209
  Receipt Date: 20050207
  Transmission Date: 20050727
  Serious: Yes (Other)
  Sender: FDA-Public Use
  Company Number: DE-GLAXOSMITHKLINE-D0045828A

PATIENT
  Sex: Male

DRUGS (1)
  1. AVODART [Suspect]
     Route: 065

REACTIONS (1)
  - PROSTATE CANCER [None]
